FAERS Safety Report 5125679-0 (Version None)
Quarter: 2006Q4

REPORT INFORMATION
  Report Type: 
  Country: None (occurrence: None)
  Receive Date: 20061010
  Receipt Date: 20061010
  Transmission Date: 20070319
  Serious: Yes (Disabling)
  Sender: FDA-Public Use
  Company Number: None

PATIENT
  Age: 60 Year
  Sex: Female
  Weight: 54.4316 kg

DRUGS (2)
  1. FOSAMAX [Suspect]
  2. ACTENOL [Concomitant]

REACTIONS (2)
  - JAW DISORDER [None]
  - SURGERY [None]
